FAERS Safety Report 10911937 (Version 1)
Quarter: 2015Q1

REPORT INFORMATION
  Report Type: Spontaneous
  Country: US (occurrence: None)
  Receive Date: 20150128
  Receipt Date: 20150128
  Transmission Date: 20150721
  Serious: No
  Sender: FDA-Public Use
  Company Number: 2014TUS011438

PATIENT
  Age: 30 Year
  Sex: Female

DRUGS (5)
  1. BRINTELLIX [Suspect]
     Active Substance: VORTIOXETINE HYDROBROMIDE
     Indication: MAJOR DEPRESSION
     Route: 048
     Dates: start: 20141103
  2. KLONOPIN [Concomitant]
     Active Substance: CLONAZEPAM
  3. LEXAPRO [Concomitant]
     Active Substance: ESCITALOPRAM OXALATE
  4. CELEXA [Concomitant]
     Active Substance: CITALOPRAM HYDROBROMIDE
  5. ZOLOFT (SERTALINE HYDROCHLORIDE) [Concomitant]

REACTIONS (1)
  - Pruritus [None]
